FAERS Safety Report 12714326 (Version 2)
Quarter: 2019Q3

REPORT INFORMATION
  Report Type: Spontaneous
  Country: US (occurrence: US)
  Receive Date: 20160905
  Receipt Date: 20190716
  Transmission Date: 20191004
  Serious: No
  Sender: FDA-Public Use
  Company Number: US-JAZZ-2016-US-008763

PATIENT
  Age: 46 Year
  Sex: Female

DRUGS (38)
  1. AMYLASE, BETAINE HYDROCHLORIDE, BROMELAINS, PAPAIN [Concomitant]
  2. CYTOMEL [Concomitant]
     Active Substance: LIOTHYRONINE SODIUM
  3. MAGNESIUM CITRATE. [Concomitant]
     Active Substance: MAGNESIUM CITRATE
  4. MELATONIN [Concomitant]
     Active Substance: MELATONIN
  5. OCELLA [Concomitant]
     Active Substance: DROSPIRENONE\ETHINYL ESTRADIOL
  6. DUEXIS [Concomitant]
     Active Substance: FAMOTIDINE\IBUPROFEN
  7. VALSARTAN. [Concomitant]
     Active Substance: VALSARTAN
  8. XYREM [Suspect]
     Active Substance: SODIUM OXYBATE
     Dosage: 4.5 G, SECOND DOSE
     Route: 048
     Dates: start: 201601
  9. METHYLCOBALAMIN. [Concomitant]
     Active Substance: METHYLCOBALAMIN
  10. SELENIUM [Concomitant]
     Active Substance: SELENIUM
  11. LOVAZA [Concomitant]
     Active Substance: OMEGA-3-ACID ETHYL ESTERS
  12. BUPROPION HCL [Concomitant]
     Active Substance: BUPROPION HYDROCHLORIDE
  13. RELPAX [Concomitant]
     Active Substance: ELETRIPTAN HYDROBROMIDE
  14. L-THREONINE [Concomitant]
  15. PROGESTERONE. [Concomitant]
     Active Substance: PROGESTERONE
  16. ALPHA LIPOIC ACID [Concomitant]
     Active Substance: .ALPHA.-LIPOIC ACID
  17. CAMBIA [Concomitant]
     Active Substance: DICLOFENAC POTASSIUM
  18. PHOSPHATIDYL SERINE [Concomitant]
     Active Substance: PHOSPHATIDYL SERINE
  19. VASCEPA [Concomitant]
     Active Substance: ICOSAPENT ETHYL
  20. XYREM [Suspect]
     Active Substance: SODIUM OXYBATE
     Indication: SOMNOLENCE
     Dosage: 2.25 G, BID
     Route: 048
     Dates: start: 201307, end: 201308
  21. FERROUS SULFATE. [Concomitant]
     Active Substance: FERROUS SULFATE
  22. FOLIC ACID. [Concomitant]
     Active Substance: FOLIC ACID
  23. TRAZODONE [Concomitant]
     Active Substance: TRAZODONE HYDROCHLORIDE
  24. COENZYME Q10 [Concomitant]
     Active Substance: UBIDECARENONE
  25. DHEA [Concomitant]
     Active Substance: PRASTERONE
  26. XYREM [Suspect]
     Active Substance: SODIUM OXYBATE
     Indication: CATAPLEXY
     Dosage: 6 G, FIRST DOSE
     Route: 048
     Dates: start: 201601
  27. VITAMIN D3 [Concomitant]
     Active Substance: CHOLECALCIFEROL
  28. TAURINE [Concomitant]
     Active Substance: TAURINE
  29. BRASSICA OLERACEA EXTRACT [Concomitant]
  30. VITAMIN B COMPLEX WITH C [Concomitant]
     Active Substance: ASCORBIC ACID\CALCIUM PANTOTHENATE\CYANOCOBALAMIN\NIACINAMIDE\PYRIDOXINE HYDROCHLORIDE\RIBOFLAVIN\THIAMINE MONONITRATE
  31. PROMETHAZINE HYDROCHLORIDE. [Concomitant]
     Active Substance: PROMETHAZINE HYDROCHLORIDE
  32. LEVOTHYROXINE. [Concomitant]
     Active Substance: LEVOTHYROXINE
  33. METFORMIN HCL [Concomitant]
     Active Substance: METFORMIN HYDROCHLORIDE
  34. XYREM [Suspect]
     Active Substance: SODIUM OXYBATE
     Indication: NARCOLEPSY
     Dosage: DOSE ADJUSTMENTS
     Route: 048
  35. ZINC GLUCONATE [Concomitant]
     Active Substance: ZINC GLUCONATE
  36. MODAFINIL. [Concomitant]
     Active Substance: MODAFINIL
  37. RESTASIS [Concomitant]
     Active Substance: CYCLOSPORINE
  38. LAMISIL [Concomitant]
     Active Substance: TERBINAFINE HYDROCHLORIDE

REACTIONS (3)
  - Rosacea [Unknown]
  - Hypertension [Recovering/Resolving]
  - Pityriasis lichenoides et varioliformis acuta [Unknown]

NARRATIVE: CASE EVENT DATE: 201510
